FAERS Safety Report 9137344 (Version 4)
Quarter: 2013Q2

REPORT INFORMATION
  Report Type: Spontaneous
  Country: US (occurrence: US)
  Receive Date: 20130304
  Receipt Date: 20130415
  Transmission Date: 20140414
  Serious: Yes (Other)
  Sender: FDA-Public Use
  Company Number: US-PFIZER INC-2013072369

PATIENT
  Sex: Female

DRUGS (1)
  1. TOVIAZ [Suspect]
     Indication: POLLAKIURIA
     Dosage: UNK

REACTIONS (5)
  - Angina pectoris [Unknown]
  - Nasal congestion [Unknown]
  - Urine flow decreased [Unknown]
  - Palpitations [Unknown]
  - Dizziness [Unknown]
